FAERS Safety Report 4994854-8 (Version None)
Quarter: 2006Q2

REPORT INFORMATION
  Report Type: 
  Country: None (occurrence: None)
  Receive Date: 20060508
  Receipt Date: 20060426
  Transmission Date: 20061013
  Serious: Yes (Hospitalization)
  Sender: FDA-Public Use
  Company Number: FR-AMGEN-UK177757

PATIENT
  Age: 60 Year
  Sex: Male
  Weight: 85 kg

DRUGS (1)
  1. KEPIVANCE [Suspect]
     Indication: MUCOSAL INFLAMMATION
     Route: 065
     Dates: start: 20060225, end: 20060309

REACTIONS (3)
  - ANGIONEUROTIC OEDEMA [None]
  - ERYTHEMA [None]
  - FACE OEDEMA [None]
